FAERS Safety Report 10446935 (Version 3)
Quarter: 2014Q4

REPORT INFORMATION
  Report Type: Spontaneous
  Country: US (occurrence: None)
  Receive Date: 20140909
  Receipt Date: 20141103
  Transmission Date: 20150528
  Serious: Yes (Other)
  Sender: FDA-Public Use
  Company Number: 2014-US-011072

PATIENT
  Age: 66 Year
  Sex: Male
  Weight: 83.9 kg

DRUGS (9)
  1. ACEBUTOLOL [Concomitant]
     Active Substance: ACEBUTOLOL
  2. ALL OTHER THERAPEUTIC PRODUCTS) (NASAL SPRAY(NAME UNKNOWN)) [Concomitant]
  3. VITAMIN D3 [Concomitant]
     Active Substance: CHOLECALCIFEROL
  4. METFORMIN [Concomitant]
     Active Substance: METFORMIN HYDROCHLORIDE
  5. MULTIVITAMIN (VITAMINS NOS) [Concomitant]
     Active Substance: VITAMINS
  6. NOVOLOG [Concomitant]
     Active Substance: INSULIN ASPART
  7. XYREM [Suspect]
     Active Substance: SODIUM OXYBATE
     Indication: NARCOLEPSY
     Route: 048
     Dates: start: 201401, end: 2014
  8. LANTUS [Concomitant]
     Active Substance: INSULIN GLARGINE
  9. QUINAPRIL [Concomitant]
     Active Substance: QUINAPRIL\QUINAPRIL HYDROCHLORIDE

REACTIONS (5)
  - Weight fluctuation [None]
  - Adrenal neoplasm [None]
  - Therapeutic response unexpected [None]
  - Prescribed overdose [None]
  - Pancreatic neoplasm [None]

NARRATIVE: CASE EVENT DATE: 2014
